FAERS Safety Report 7468139-4 (Version None)
Quarter: 2011Q2

REPORT INFORMATION
  Report Type: 
  Country: None (occurrence: None)
  Receive Date: 20110509
  Receipt Date: 20110330
  Transmission Date: 20111010
  Serious: Yes (Other)
  Sender: FDA-Public Use
  Company Number: US-ALEXION-A201100345

PATIENT
  Sex: Female

DRUGS (10)
  1. EXJADE [Concomitant]
     Indication: IRON OVERLOAD
     Dosage: 500 MG, QAM
  2. SOLIRIS [Suspect]
     Indication: PAROXYSMAL NOCTURNAL HAEMOGLOBINURIA
     Dosage: 600 MG, QWX4
     Route: 042
     Dates: start: 20070817, end: 20070901
  3. SOLIRIS [Suspect]
     Dosage: 900 MG, Q2W
     Route: 042
     Dates: start: 20070913
  4. VITAMIN C [Concomitant]
     Dosage: 500 MG, UNK
  5. PREDNISONE [Suspect]
  6. NORVASC [Concomitant]
     Dosage: 2.5 MG, UNK
  7. FOLIC ACID [Concomitant]
     Dosage: 1000 UG, QD
  8. CALCIUM [Concomitant]
     Dosage: 800 MG, QD
  9. VITAMIN E [Concomitant]
     Dosage: 400 IU, UNK
  10. ONE A DAY [Concomitant]

REACTIONS (7)
  - VAGINAL LESION [None]
  - VAGINAL DISORDER [None]
  - SCAR [None]
  - VAGINAL STRICTURE [None]
  - HAEMOGLOBIN DECREASED [None]
  - ANORECTAL DISORDER [None]
  - VULVAL CANCER STAGE 0 [None]
